FAERS Safety Report 18806402 (Version 1)
Quarter: 2021Q1

REPORT INFORMATION
  Report Type: Spontaneous
  Country: US (occurrence: US)
  Receive Date: 20210129
  Receipt Date: 20210129
  Transmission Date: 20210419
  Serious: Yes (Hospitalization)
  Sender: FDA-Public Use
  Company Number: US-EMMAUS MEDICAL, INC.-EMM202011-000331

PATIENT
  Age: 20 Year
  Sex: Male

DRUGS (1)
  1. ENDARI [Suspect]
     Active Substance: GLUTAMINE
     Indication: SICKLE CELL DISEASE
     Route: 048
     Dates: start: 20200805

REACTIONS (1)
  - Sickle cell anaemia with crisis [Not Recovered/Not Resolved]

NARRATIVE: CASE EVENT DATE: 20201108
